FAERS Safety Report 5278776-3 (Version None)
Quarter: 2007Q1

REPORT INFORMATION
  Report Type: 
  Country: None (occurrence: None)
  Receive Date: 20061213
  Receipt Date: 20050401
  Transmission Date: 20070707
  Serious: Yes (Hospitalization)
  Sender: FDA-Public Use
  Company Number: 2005UW05057

PATIENT
  Age: 54 Year
  Sex: Male
  Weight: 89.811 kg

DRUGS (3)
  1. SEROQUEL [Suspect]
     Indication: SCHIZOPHRENIA
     Dosage: 100 MG PO
     Route: 048
     Dates: start: 20050301
  2. SEROQUEL [Suspect]
     Indication: SCHIZOPHRENIA
     Dosage: 200 MG PO
     Route: 048
     Dates: start: 20050301
  3. HALDOL [Suspect]
     Indication: SCHIZOPHRENIA

REACTIONS (3)
  - HALLUCINATION [None]
  - MANIA [None]
  - PSYCHOTIC DISORDER [None]
